FAERS Safety Report 11615682 (Version 1)
Quarter: 2015Q4

REPORT INFORMATION
  Report Type: Report from Study
  Country: US (occurrence: US)
  Receive Date: 20151009
  Receipt Date: 20151009
  Transmission Date: 20160304
  Serious: Yes (Other)
  Sender: FDA-Public Use
  Company Number: US-ABBVIE-15K-163-1475190-00

PATIENT
  Sex: Male
  Weight: 83.99 kg

DRUGS (10)
  1. HUMIRA [Suspect]
     Active Substance: ADALIMUMAB
     Indication: PROCTALGIA
     Route: 058
     Dates: start: 201202, end: 201202
  2. HUMIRA [Suspect]
     Active Substance: ADALIMUMAB
     Indication: CROHN^S DISEASE
     Route: 058
     Dates: start: 201203, end: 201203
  3. TRAMADOL. [Concomitant]
     Active Substance: TRAMADOL
     Indication: CROHN^S DISEASE
  4. PAROXETINE [Concomitant]
     Active Substance: PAROXETINE\PAROXETINE HYDROCHLORIDE
     Indication: ANXIETY
  5. HYDROCODONE [Concomitant]
     Active Substance: HYDROCODONE
     Indication: CROHN^S DISEASE
     Dosage: 5/325
  6. OXYCODONE [Concomitant]
     Active Substance: OXYCODONE
     Indication: CROHN^S DISEASE
     Dosage: 5/325
  7. HYOSCYAMINE. [Concomitant]
     Active Substance: HYOSCYAMINE
     Indication: CROHN^S DISEASE
  8. PREDNISONE. [Concomitant]
     Active Substance: PREDNISONE
     Indication: CROHN^S DISEASE
  9. PREDNISONE. [Concomitant]
     Active Substance: PREDNISONE
     Dates: start: 201509
  10. HUMIRA [Suspect]
     Active Substance: ADALIMUMAB
     Route: 058
     Dates: start: 201203

REACTIONS (6)
  - Proctalgia [Recovered/Resolved]
  - Crohn^s disease [Not Recovered/Not Resolved]
  - Stoma site pain [Not Recovered/Not Resolved]
  - Injection site pain [Not Recovered/Not Resolved]
  - Hiatus hernia [Not Recovered/Not Resolved]
  - Drug ineffective [Recovered/Resolved]

NARRATIVE: CASE EVENT DATE: 2012
